FAERS Safety Report 5223826-3 (Version None)
Quarter: 2007Q1

REPORT INFORMATION
  Report Type: 
  Country: None (occurrence: None)
  Receive Date: 20070130
  Receipt Date: 20070123
  Transmission Date: 20070707
  Serious: Yes (Other)
  Sender: FDA-Public Use
  Company Number: 2007UW01379

PATIENT
  Age: 75 Year
  Sex: Male
  Weight: 88.5 kg

DRUGS (7)
  1. PULMICORT RESPULES [Suspect]
     Indication: ASTHMA
     Route: 055
  2. PULMICORT RESPULES [Suspect]
     Indication: CHRONIC OBSTRUCTIVE PULMONARY DISEASE
     Route: 055
  3. ZITHROMAX [Concomitant]
  4. NORVASC [Concomitant]
  5. ISOSORBIDE [Concomitant]
  6. PRILOSEC [Concomitant]
  7. UNSPECIFIED WATER PILL [Concomitant]

REACTIONS (2)
  - DYSPNOEA [None]
  - RESPIRATORY RATE INCREASED [None]
